FAERS Safety Report 5350945-3 (Version None)
Quarter: 2007Q2

REPORT INFORMATION
  Report Type: 
  Country: None (occurrence: None)
  Receive Date: 20070606
  Receipt Date: 20070525
  Transmission Date: 20071010
  Serious: Yes (Hospitalization)
  Sender: FDA-Public Use
  Company Number: 2007SP008668

PATIENT
  Age: 48 Year
  Sex: Male
  Weight: 92 kg

DRUGS (5)
  1. PEG-INTRON [Suspect]
     Indication: HEPATITIS C
     Dosage: 150 MCG;QW;SC
     Route: 058
     Dates: start: 20070209, end: 20070429
  2. REBETOL [Suspect]
     Indication: HEPATITIS C
     Dosage: 800 MG;QD;PO
     Route: 048
     Dates: start: 20070209, end: 20070429
  3. SPIRONOLACTONE [Concomitant]
  4. LASIX [Concomitant]
  5. PROCRIT [Suspect]
     Indication: ANAEMIA
     Dosage: 40000;QW;SC
     Route: 058
     Dates: start: 20070309, end: 20070429

REACTIONS (5)
  - ASTHENIA [None]
  - LEUKOCYTOSIS [None]
  - MYALGIA [None]
  - PAIN [None]
  - SEPSIS [None]
